FAERS Safety Report 4603885-9 (Version None)
Quarter: 2005Q1

REPORT INFORMATION
  Report Type: 
  Country: None (occurrence: None)
  Receive Date: 20050310
  Receipt Date: 20050222
  Transmission Date: 20050727
  Serious: Yes (Hospitalization)
  Sender: FDA-Public Use
  Company Number: JP-ROCHE-396764

PATIENT
  Age: 73 Year
  Sex: Female

DRUGS (11)
  1. TAMIFLU [Suspect]
     Route: 048
     Dates: start: 20050219, end: 20050219
  2. TAMIFLU [Suspect]
     Route: 048
     Dates: start: 20050218, end: 20050218
  3. NORVASC [Concomitant]
     Route: 048
  4. ASPIRIN [Concomitant]
     Route: 048
  5. ACTOS [Concomitant]
     Route: 048
  6. NU-LOTAN [Concomitant]
     Route: 048
  7. DAONIL [Concomitant]
     Route: 048
  8. MUCOSTA [Concomitant]
     Route: 048
  9. DEPAS [Concomitant]
     Route: 048
  10. CALONAL [Concomitant]
     Dosage: TAKEN AS NEEDED (200MG)
     Route: 048
     Dates: start: 20050218
  11. SENNA EXTRACT [Concomitant]
     Dosage: TRADE NAME REPORTED AS ^YODEL.^
     Route: 048

REACTIONS (4)
  - BLOOD CREATINE PHOSPHOKINASE INCREASED [None]
  - HEPATIC FUNCTION ABNORMAL [None]
  - HYPOGLYCAEMIA [None]
  - HYPOKALAEMIA [None]
